FAERS Safety Report 19294571 (Version 1)
Quarter: 2021Q2

REPORT INFORMATION
  Report Type: Spontaneous
  Country: US (occurrence: US)
  Receive Date: 20210524
  Receipt Date: 20210524
  Transmission Date: 20210717
  Serious: No
  Sender: FDA-Public Use
  Company Number: US-EISAI MEDICAL RESEARCH-EC-2021-092660

PATIENT
  Age: 66 Year
  Sex: Female

DRUGS (2)
  1. LENVATINIB [Suspect]
     Active Substance: LENVATINIB
     Route: 048
     Dates: start: 201510, end: 201610
  2. LENVATINIB [Suspect]
     Active Substance: LENVATINIB
     Indication: THYROID CANCER
     Route: 048
     Dates: start: 20150415, end: 201510

REACTIONS (4)
  - Nausea [Unknown]
  - Diarrhoea [Unknown]
  - Thrombotic microangiopathy [Unknown]
  - Hypertension [Unknown]

NARRATIVE: CASE EVENT DATE: 201505
